FAERS Safety Report 9800636 (Version 2)
Quarter: 2014Q1

REPORT INFORMATION
  Report Type: Report from Study
  Country: US (occurrence: US)
  Receive Date: 20140107
  Receipt Date: 20140107
  Transmission Date: 20141002
  Serious: Yes (Other)
  Sender: FDA-Public Use
  Company Number: US-ROCHE-1328145

PATIENT
  Age: 57 Year
  Sex: Female

DRUGS (1)
  1. XELODA [Suspect]
     Indication: PRODUCT USED FOR UNKNOWN INDICATION
     Dosage: 8 TABLETS A DAY FOR 14 DAYS ON, 7 DAYS OFF
     Route: 065

REACTIONS (3)
  - Convulsion [Unknown]
  - Coma [Unknown]
  - Memory impairment [Recovering/Resolving]
